FAERS Safety Report 15654508 (Version 2)
Quarter: 2019Q1

REPORT INFORMATION
  Report Type: Report from Study
  Country: GB (occurrence: GB)
  Receive Date: 20181126
  Receipt Date: 20190318
  Transmission Date: 20190417
  Serious: Yes (Hospitalization)
  Sender: FDA-Public Use
  Company Number: GB-ROCHE-2218826

PATIENT
  Sex: Female

DRUGS (1)
  1. TOCILIZUMAB. [Suspect]
     Active Substance: TOCILIZUMAB
     Indication: RHEUMATOID ARTHRITIS
     Route: 042
     Dates: start: 20130207, end: 20131115

REACTIONS (3)
  - Intervertebral disc protrusion [Unknown]
  - Postoperative wound infection [Recovered/Resolved with Sequelae]
  - Cauda equina syndrome [Unknown]

NARRATIVE: CASE EVENT DATE: 20131211
